FAERS Safety Report 7270505-7 (Version None)
Quarter: 2011Q1

REPORT INFORMATION
  Report Type: 
  Country: None (occurrence: None)
  Receive Date: 20110202
  Receipt Date: 20110126
  Transmission Date: 20110831
  Serious: Yes (Life-Threatening, Hospitalization, Disabling)
  Sender: FDA-Public Use
  Company Number: JP-ELI_LILLY_AND_COMPANY-JP201011001353

PATIENT
  Sex: Female
  Weight: 41 kg

DRUGS (9)
  1. BROTIZOLAM [Concomitant]
     Dosage: 0.25 MG, AS NEEDED
     Route: 048
     Dates: start: 20100524
  2. ALIMTA [Suspect]
     Indication: LUNG ADENOCARCINOMA STAGE IV
     Dosage: 613 MG, 1/21DYAS
     Route: 042
     Dates: start: 20101015, end: 20101202
  3. VITAMIN B-12 [Concomitant]
     Dosage: 1 MG, UNK
     Route: 030
     Dates: start: 20101004, end: 20101202
  4. WARFARIN POTASSIUM [Concomitant]
     Indication: ATRIAL FIBRILLATION
     Dosage: 2 MG, DAILY (1/D)
     Route: 048
     Dates: start: 20100524
  5. SUNRYTHM [Concomitant]
     Indication: ATRIAL FIBRILLATION
     Dosage: 100 MG, 2/D
     Route: 048
     Dates: start: 20100524
  6. MAGLAX [Concomitant]
     Indication: CONSTIPATION
     Dosage: 1 G, 2/D
     Route: 048
     Dates: start: 20100524
  7. BENET [Concomitant]
     Indication: OSTEOPOROSIS
     Dosage: 2.5 MG, DAILY (1/D)
     Route: 048
     Dates: start: 20030101
  8. PANVITAN [Concomitant]
     Dosage: 1 G, DAILY (1/D)
     Route: 048
     Dates: start: 20101004
  9. LASIX [Concomitant]
     Indication: ATRIAL FIBRILLATION
     Dosage: 40 MG, DAILY (1/D)
     Route: 048
     Dates: start: 20100524

REACTIONS (2)
  - INTERSTITIAL LUNG DISEASE [None]
  - COLITIS ISCHAEMIC [None]
